FAERS Safety Report 6250842-5 (Version None)
Quarter: 2009Q2

REPORT INFORMATION
  Report Type: 
  Country: None (occurrence: None)
  Receive Date: 20090630
  Receipt Date: 20090508
  Transmission Date: 20091009
  Serious: Yes (Hospitalization)
  Sender: FDA-Public Use
  Company Number: US-ABBOTT-09P-163-0568877-00

PATIENT
  Sex: Male
  Weight: 86.26 kg

DRUGS (18)
  1. ZEMPLAR [Suspect]
     Indication: HYPERPARATHYROIDISM
     Route: 048
     Dates: start: 20081101, end: 20090501
  2. ZEMPLAR [Suspect]
     Route: 048
     Dates: start: 20090301, end: 20090419
  3. PROCRIT [Concomitant]
     Indication: RENAL DISORDER
  4. PLAVIX [Concomitant]
     Indication: CORONARY ARTERY BYPASS
  5. PLAVIX [Concomitant]
     Indication: CEREBROVASCULAR ACCIDENT
  6. CRESTOR [Concomitant]
     Indication: BLOOD CHOLESTEROL INCREASED
  7. GLIPIZIDE [Concomitant]
     Indication: DIABETES MELLITUS
  8. ALLOPURINOL [Concomitant]
     Indication: GOUT
  9. DICITRA SOL [Concomitant]
     Indication: DRUG USE FOR UNKNOWN INDICATION
  10. TERARDSIN [Concomitant]
     Indication: DRUG USE FOR UNKNOWN INDICATION
  11. GEMFIBROZIL [Concomitant]
     Indication: DRUG USE FOR UNKNOWN INDICATION
  12. AMLODIPINE [Concomitant]
     Indication: HYPERTENSION
  13. RAMITRIL [Concomitant]
     Indication: DRUG USE FOR UNKNOWN INDICATION
  14. NADOLOL [Concomitant]
     Indication: DRUG USE FOR UNKNOWN INDICATION
  15. FUROSEMIDE INTENSOL [Concomitant]
     Indication: FLUID RETENTION
  16. STROVITE [Concomitant]
     Indication: DRUG USE FOR UNKNOWN INDICATION
  17. SODIUM BICARBONATE [Concomitant]
     Indication: GASTROOESOPHAGEAL REFLUX DISEASE
  18. MULTI-VITAMIN [Concomitant]
     Indication: DRUG USE FOR UNKNOWN INDICATION

REACTIONS (4)
  - ANAEMIA [None]
  - BLOOD IRON DECREASED [None]
  - CHEST PAIN [None]
  - DIARRHOEA [None]
